FAERS Safety Report 7009756-5 (Version None)
Quarter: 2010Q3

REPORT INFORMATION
  Report Type: 
  Country: None (occurrence: None)
  Receive Date: 20100923
  Receipt Date: 20100910
  Transmission Date: 20110219
  Serious: No
  Sender: FDA-Public Use
  Company Number: US-B.I. PHARMACEUTICALS,INC./RIDGEFIELD-2010-BP-10455BP

PATIENT
  Sex: Female

DRUGS (11)
  1. COMBIVENT [Suspect]
     Dosage: 2 PUF
     Route: 055
     Dates: start: 20100812, end: 20100812
  2. LIPITOR [Concomitant]
     Indication: CARDIAC DISORDER
  3. ASPIRIN [Concomitant]
     Indication: PROPHYLAXIS
  4. FUROSEMIDE [Concomitant]
     Indication: FLUID RETENTION
  5. ISOSORBIDE [Concomitant]
     Indication: CARDIAC DISORDER
  6. CARVEDILOL [Concomitant]
     Indication: CARDIAC DISORDER
  7. DIOVAN [Concomitant]
     Indication: CARDIAC DISORDER
  8. PLAVIX [Concomitant]
     Indication: CARDIAC DISORDER
  9. METFORMIN [Concomitant]
     Indication: DIABETES MELLITUS
  10. FOLIC ACID [Concomitant]
     Indication: PROPHYLAXIS
  11. SPIRONOLACTONE [Concomitant]
     Indication: FLUID RETENTION

REACTIONS (4)
  - ABDOMINAL PAIN UPPER [None]
  - DIZZINESS [None]
  - INSOMNIA [None]
  - OROPHARYNGEAL PAIN [None]
